FAERS Safety Report 4765497-6 (Version None)
Quarter: 2005Q3

REPORT INFORMATION
  Report Type: 
  Country: None (occurrence: None)
  Receive Date: 20050912
  Receipt Date: 20050901
  Transmission Date: 20060218
  Serious: Yes (Other)
  Sender: FDA-Public Use
  Company Number: US-JNJFOC-20050900231

PATIENT
  Sex: Male
  Weight: 78.93 kg

DRUGS (8)
  1. INFLIXIMAB [Suspect]
     Indication: RHEUMATOID ARTHRITIS
     Route: 042
  2. CLINORIL [Concomitant]
  3. DETROL [Concomitant]
  4. FOSAMAX [Concomitant]
  5. IMURAN [Concomitant]
  6. PREDNISONE TAB [Concomitant]
  7. PRILOSEC [Concomitant]
  8. PYRIDOSTIGMINE BROMIDE [Concomitant]

REACTIONS (1)
  - SQUAMOUS CELL CARCINOMA [None]
